FAERS Safety Report 4315497-5 (Version None)
Quarter: 2004Q1

REPORT INFORMATION
  Report Type: 
  Country: None (occurrence: None)
  Receive Date: 20040311
  Receipt Date: 20040305
  Transmission Date: 20041129
  Serious: Yes (Other)
  Sender: FDA-Public Use
  Company Number: WAES 0403DEU00053

PATIENT
  Sex: Male

DRUGS (2)
  1. ATORVASTATIN CALCIUM [Concomitant]
     Route: 048
  2. ZETIA [Suspect]
     Route: 048

REACTIONS (1)
  - PANCREATITIS [None]
